FAERS Safety Report 7545727-8 (Version None)
Quarter: 2011Q2

REPORT INFORMATION
  Report Type: 
  Country: None (occurrence: None)
  Receive Date: 20110614
  Receipt Date: 20110606
  Transmission Date: 20111010
  Serious: Yes (Hospitalization)
  Sender: FDA-Public Use
  Company Number: DE-B.I. PHARMACEUTICALS,INC./RIDGEFIELD-2011-DE-03444DE

PATIENT
  Age: 82 Year
  Sex: Female
  Weight: 55 kg

DRUGS (1)
  1. SPIRIVA [Suspect]
     Dosage: 1 ANZ
     Route: 048
     Dates: start: 20041001

REACTIONS (3)
  - GASTROINTESTINAL DISORDER [None]
  - MEDICATION ERROR [None]
  - NON-CARDIAC CHEST PAIN [None]
